FAERS Safety Report 4685793-0 (Version None)
Quarter: 2005Q2

REPORT INFORMATION
  Report Type: 
  Country: None (occurrence: None)
  Receive Date: 20050607
  Receipt Date: 20050607
  Transmission Date: 20051028
  Serious: Yes (Hospitalization)
  Sender: FDA-Public Use
  Company Number: None

PATIENT
  Age: 42 Year
  Sex: Female
  Weight: 94.8018 kg

DRUGS (4)
  1. VOLTAREN [Suspect]
     Indication: ARTHRALGIA
     Dosage: 75 MG BID PO
     Route: 048
     Dates: start: 20050407
  2. GLUCOSAMINE/CHRONDROITON [Concomitant]
  3. WELLBUTRIN [Concomitant]
  4. LOTENSIN [Concomitant]

REACTIONS (1)
  - ACUTE GENERALISED EXANTHEMATOUS PUSTULOSIS [None]
